FAERS Safety Report 9767777 (Version 2)
Quarter: 2014Q1

REPORT INFORMATION
  Report Type: Spontaneous
  Country: BR (occurrence: BR)
  Receive Date: 20131217
  Receipt Date: 20140224
  Transmission Date: 20141002
  Serious: Yes (Other)
  Sender: FDA-Public Use
  Company Number: BR-BRISTOL-MYERS SQUIBB COMPANY-19889575

PATIENT
  Age: 61 Year
  Sex: Female

DRUGS (2)
  1. ONGLYZA TABS 5 MG [Suspect]
     Indication: DIABETES MELLITUS
     Dosage: AFTER BREAKFAST
  2. METFORMIN HCL [Suspect]
     Dosage: AT AFTERNOON AND NIGHT

REACTIONS (1)
  - Renal cyst [Unknown]
